FAERS Safety Report 6183716-9 (Version None)
Quarter: 2009Q2

REPORT INFORMATION
  Report Type: 
  Country: None (occurrence: None)
  Receive Date: 20090506
  Receipt Date: 20090506
  Transmission Date: 20091009
  Serious: Yes (Life-Threatening)
  Sender: FDA-Public Use
  Company Number: None

PATIENT
  Age: 40 Year
  Sex: Female
  Weight: 61.2356 kg

DRUGS (1)
  1. LAMOTRIGINE [Suspect]
     Indication: EPILEPSY
     Dosage: 200 MG 2 DAY PO
     Route: 048

REACTIONS (5)
  - CONFUSIONAL STATE [None]
  - GRAND MAL CONVULSION [None]
  - NAUSEA [None]
  - PARTIAL SEIZURES [None]
  - PRODUCT QUALITY ISSUE [None]
